FAERS Safety Report 12446703 (Version 1)
Quarter: 2016Q2

REPORT INFORMATION
  Report Type: Spontaneous
  Country: US (occurrence: US)
  Receive Date: 20160608
  Receipt Date: 20160608
  Transmission Date: 20160815
  Serious: No
  Sender: FDA-Public Use
  Company Number: US-PFIZER INC-2016286461

PATIENT
  Age: 42 Year
  Sex: Male
  Weight: 117.93 kg

DRUGS (2)
  1. ADVIL [Suspect]
     Active Substance: IBUPROFEN
     Indication: HEADACHE
     Dosage: 325 MG, IN MORNING
     Route: 048
     Dates: start: 20160528, end: 201605
  2. ADVIL [Suspect]
     Active Substance: IBUPROFEN
     Dosage: 325 MG,  IN MORNING
     Route: 048
     Dates: start: 20160601

REACTIONS (4)
  - Pruritus [Not Recovered/Not Resolved]
  - Hypersensitivity [Not Recovered/Not Resolved]
  - Erythema [Not Recovered/Not Resolved]
  - Skin disorder [Not Recovered/Not Resolved]

NARRATIVE: CASE EVENT DATE: 201605
